FAERS Safety Report 15027814 (Version 3)
Quarter: 2019Q2

REPORT INFORMATION
  Report Type: Spontaneous
  Country: US (occurrence: US)
  Receive Date: 20180619
  Receipt Date: 20190510
  Transmission Date: 20190711
  Serious: No
  Sender: FDA-Public Use
  Company Number: US-PFIZER INC-2018247252

PATIENT
  Age: 58 Year
  Sex: Female
  Weight: 59.86 kg

DRUGS (3)
  1. DOXYCYCLINE CALCIUM [Suspect]
     Active Substance: DOXYCYCLINE CALCIUM
     Indication: ARTHRITIS
     Dosage: 100 MG, 1X/DAY
     Dates: start: 20140715, end: 201504
  2. DOXYCYCLINE CALCIUM [Suspect]
     Active Substance: DOXYCYCLINE CALCIUM
     Indication: PSORIATIC ARTHROPATHY
     Dosage: UNK
     Dates: start: 2012
  3. MELOXICAM. [Concomitant]
     Active Substance: MELOXICAM
     Dosage: 15 MG, UNK

REACTIONS (1)
  - Drug ineffective for unapproved indication [Not Recovered/Not Resolved]

NARRATIVE: CASE EVENT DATE: 2012
